FAERS Safety Report 6863043-4 (Version None)
Quarter: 2010Q3

REPORT INFORMATION
  Report Type: 
  Country: None (occurrence: None)
  Receive Date: 20100721
  Receipt Date: 20100716
  Transmission Date: 20110219
  Serious: Yes (Disabling, Other)
  Sender: FDA-Public Use
  Company Number: GB-MERCK-1007GBR00088

PATIENT
  Age: 70 Year
  Sex: Male
  Weight: 70 kg

DRUGS (15)
  1. ZOCOR [Suspect]
     Indication: BLOOD CHOLESTEROL INCREASED
     Route: 048
     Dates: start: 20080101, end: 20100629
  2. AMLODIPINE [Concomitant]
     Route: 065
  3. BUPRENORPHINE [Concomitant]
     Route: 060
  4. BUPRENORPHINE [Concomitant]
     Route: 061
  5. FLUTICASONE [Concomitant]
     Route: 065
  6. INDORAMIN [Concomitant]
     Route: 065
  7. LANSOPRAZOLE [Concomitant]
     Route: 065
  8. METOCLOPRAMIDE [Concomitant]
     Route: 065
  9. MIRTAZAPINE [Concomitant]
     Route: 065
  10. NUTRITIONAL SUPPLEMENTS [Concomitant]
     Route: 065
  11. ACETAMINOPHEN [Concomitant]
     Route: 065
  12. ALBUTEROL [Concomitant]
     Route: 055
  13. FLUTICASONE PROPIONATE AND SALMETEROL XINAFOATE [Concomitant]
     Route: 055
  14. CARBAMAZEPINE [Concomitant]
     Route: 065
  15. URSODIOL [Concomitant]
     Route: 065

REACTIONS (2)
  - ASTHENIA [None]
  - MUSCLE ATROPHY [None]
